FAERS Safety Report 4892939-8 (Version None)
Quarter: 2005Q4

REPORT INFORMATION
  Report Type: 
  Country: None (occurrence: None)
  Receive Date: 20051223
  Receipt Date: 20050321
  Transmission Date: 20060501
  Serious: Yes (Hospitalization, Other)
  Sender: FDA-Public Use
  Company Number: PHEH2005US03076

PATIENT
  Age: 49 Year
  Sex: Male
  Weight: 73.5 kg

DRUGS (4)
  1. CLOZARIL [Suspect]
     Indication: PSYCHOTIC DISORDER
     Dosage: 400 MG, QD, ORAL
     Route: 048
     Dates: start: 20010101, end: 20050122
  2. PAROXETINE HCL (NGX) (PAROXETINE) [Concomitant]
  3. VALPROIC ACID [Concomitant]
  4. CLONAZEPAM [Concomitant]

REACTIONS (5)
  - AGITATION [None]
  - CONFUSIONAL STATE [None]
  - NEUTROPHIL COUNT DECREASED [None]
  - PSYCHOTIC DISORDER [None]
  - WHITE BLOOD CELL COUNT DECREASED [None]
